FAERS Safety Report 16124604 (Version 2)
Quarter: 2019Q2

REPORT INFORMATION
  Report Type: Spontaneous
  Country: JP (occurrence: JP)
  Receive Date: 20190327
  Receipt Date: 20190524
  Transmission Date: 20190711
  Serious: Yes (Death, Other)
  Sender: FDA-Public Use
  Company Number: JP-INCYTE CORPORATION-2019IN002641

PATIENT

DRUGS (15)
  1. RABEPRAZOLE SODIUM. [Concomitant]
     Active Substance: RABEPRAZOLE SODIUM
     Indication: PRODUCT USED FOR UNKNOWN INDICATION
     Dosage: 10 MG, QD
     Route: 048
  2. CARBAZOCHROME SODIUM SULFONATE [Concomitant]
     Active Substance: CARBAZOCHROME SODIUM SULFONATE
     Indication: PRODUCT USED FOR UNKNOWN INDICATION
     Dosage: 30 MG, TID
     Route: 048
  3. RED BLOOD CELLS, CONCENTRATED [Concomitant]
     Active Substance: HUMAN RED BLOOD CELL
     Indication: PRODUCT USED FOR UNKNOWN INDICATION
     Route: 065
     Dates: start: 20180925
  4. JAKAVI [Suspect]
     Active Substance: RUXOLITINIB
     Dosage: 20 MILLIGRAM, UNK
     Route: 048
     Dates: end: 20190204
  5. JAKAVI [Suspect]
     Active Substance: RUXOLITINIB
     Indication: SPLENOMEGALY
     Dosage: 30 MILLIGRAM, UNK
     Route: 048
  6. JAKAVI [Suspect]
     Active Substance: RUXOLITINIB
     Dosage: 10 MILLIGRAM, UNK
     Route: 048
     Dates: start: 20190204, end: 20190207
  7. FEBURIC [Concomitant]
     Active Substance: FEBUXOSTAT
     Indication: PRODUCT USED FOR UNKNOWN INDICATION
     Dosage: 40 MG, QD
     Route: 048
  8. PLATELETS [Concomitant]
     Active Substance: HUMAN PLATELET, ALLOGENIC
     Indication: PRODUCT USED FOR UNKNOWN INDICATION
     Route: 065
     Dates: start: 20190207
  9. JAKAVI [Suspect]
     Active Substance: RUXOLITINIB
     Dosage: 25 MILLIGRAM, UNK
     Route: 048
  10. CANDESARTAN. [Concomitant]
     Active Substance: CANDESARTAN
     Indication: PRODUCT USED FOR UNKNOWN INDICATION
     Dosage: 8 MG, QD
     Route: 048
  11. MIYA-BM [Concomitant]
     Active Substance: CLOSTRIDIUM BUTYRICUM SPORES STRAIN M-55
     Indication: PRODUCT USED FOR UNKNOWN INDICATION
     Dosage: 1 G, TID
     Route: 048
  12. HYDREA [Concomitant]
     Active Substance: HYDROXYUREA
     Indication: PRODUCT USED FOR UNKNOWN INDICATION
     Route: 048
     Dates: end: 20181001
  13. JAKAVI [Suspect]
     Active Substance: RUXOLITINIB
     Indication: MYELOFIBROSIS
     Dosage: UNK
     Route: 048
  14. CARNACULIN [Concomitant]
     Active Substance: KALLIDINOGENASE
     Indication: PRODUCT USED FOR UNKNOWN INDICATION
     Dosage: 50 MG, TID
     Route: 048
  15. AMLODIPINE [Concomitant]
     Active Substance: AMLODIPINE BESYLATE
     Indication: PRODUCT USED FOR UNKNOWN INDICATION
     Dosage: 5 MG, QD
     Route: 048

REACTIONS (17)
  - Haemoglobin decreased [Unknown]
  - Platelet count decreased [Not Recovered/Not Resolved]
  - Renal impairment [Unknown]
  - Blood pressure decreased [Unknown]
  - Myelofibrosis [Fatal]
  - Ulcer [Unknown]
  - Concomitant disease aggravated [Unknown]
  - Urinary tract infection [Unknown]
  - Infection [Fatal]
  - Cellulitis [Unknown]
  - Pyrexia [Unknown]
  - Cardiac failure congestive [Unknown]
  - Escherichia bacteraemia [Unknown]
  - Oxygen saturation decreased [Unknown]
  - Splenomegaly [Fatal]
  - Somnolence [Unknown]
  - Pneumonia aspiration [Unknown]

NARRATIVE: CASE EVENT DATE: 2017
